FAERS Safety Report 5343765-7 (Version None)
Quarter: 2007Q2

REPORT INFORMATION
  Report Type: 
  Country: None (occurrence: None)
  Receive Date: 20070531
  Receipt Date: 20070531
  Transmission Date: 20071010
  Serious: Yes (Death)
  Sender: FDA-Public Use
  Company Number: None

PATIENT
  Age: 3 Month
  Sex: Female
  Weight: 0.72 kg

DRUGS (1)
  1. SYNAGIS [Suspect]
     Dosage: IM
     Route: 030
     Dates: start: 20070502

REACTIONS (1)
  - DEATH [None]
